FAERS Safety Report 9076191 (Version 1)
Quarter: 2013Q1

REPORT INFORMATION
  Report Type: Report from Study
  Country: US (occurrence: US)
  Receive Date: 20130129
  Receipt Date: 20130129
  Transmission Date: 20140127
  Serious: No
  Sender: FDA-Public Use
  Company Number: US-ABBOTT-12P-163-0915064-00

PATIENT
  Age: 45 Year
  Sex: Female

DRUGS (6)
  1. HUMIRA 40 MG/0.8 ML PEN [Suspect]
     Indication: COLITIS ULCERATIVE
     Dosage: 160 MG LOADING DOSE
     Dates: start: 20120218, end: 20120218
  2. HUMIRA 40 MG/0.8 ML PEN [Suspect]
     Indication: CROHN^S DISEASE
     Dosage: 80MG LOADING DOSE
     Dates: start: 20120303, end: 20120303
  3. HUMIRA 40 MG/0.8 ML PEN [Suspect]
     Indication: PROCTITIS ULCERATIVE
  4. LIALDA [Concomitant]
     Indication: PROCTITIS ULCERATIVE
     Dosage: 1.2 G, 2 DAILY
  5. MULTIVITAMIN INCLUDING CALCIUM AND MFN [Concomitant]
     Indication: PRODUCT USED FOR UNKNOWN INDICATION
     Dosage: OVER THE COUNTER
  6. RELPAX [Concomitant]
     Indication: MIGRAINE

REACTIONS (10)
  - Joint swelling [Recovering/Resolving]
  - Oedema [Recovering/Resolving]
  - Pain in extremity [Unknown]
  - Musculoskeletal stiffness [Unknown]
  - Muscle spasms [Recovered/Resolved]
  - Oedema [Recovering/Resolving]
  - Migraine [Not Recovered/Not Resolved]
  - Local swelling [Recovering/Resolving]
  - Pain [Not Recovered/Not Resolved]
  - Gait disturbance [Unknown]
